FAERS Safety Report 5809073-2 (Version None)
Quarter: 2008Q3

REPORT INFORMATION
  Report Type: 
  Country: None (occurrence: None)
  Receive Date: 20080711
  Receipt Date: 20080711
  Transmission Date: 20090109
  Serious: No
  Sender: FDA-Public Use
  Company Number: None

PATIENT
  Sex: Male
  Weight: 116.2 kg

DRUGS (2)
  1. NEORAL [Suspect]
     Indication: HODGKIN'S DISEASE
     Dosage: PRESENTLY ON 550MG 2 X PER DAY PO
     Route: 048
     Dates: start: 20080707
  2. NEORAL [Suspect]
     Indication: TRANSPLANT
     Dosage: PRESENTLY ON 550MG 2 X PER DAY PO
     Route: 048
     Dates: start: 20080707

REACTIONS (1)
  - NO ADVERSE EVENT [None]
